FAERS Safety Report 8791887 (Version 2)
Quarter: 2012Q4

REPORT INFORMATION
  Report Type: 
  Country: JP (occurrence: JP)
  Receive Date: 20120918
  Receipt Date: 20121106
  Transmission Date: 20130627
  Serious: Yes (Death)
  Sender: FDA-Public Use
  Company Number: JP-ELI_LILLY_AND_COMPANY-JP201209003217

PATIENT
  Age: 79 Year
  Sex: Male

DRUGS (4)
  1. ALIMTA [Suspect]
     Indication: LUNG ADENOCARCINOMA STAGE III
     Dosage: 450 mg/m2, UNK
  2. CARBOPLATIN [Concomitant]
     Indication: LUNG ADENOCARCINOMA STAGE III
     Dosage: AUC4.5
  3. FOLIC ACID [Concomitant]
  4. VITAMIN B12 [Concomitant]

REACTIONS (3)
  - Interstitial lung disease [Fatal]
  - Computerised tomogram abnormal [Not Recovered/Not Resolved]
  - Dyspnoea exertional [Not Recovered/Not Resolved]
